FAERS Safety Report 4845452-8 (Version None)
Quarter: 2005Q4

REPORT INFORMATION
  Report Type: 
  Country: None (occurrence: None)
  Receive Date: 20051125
  Receipt Date: 20051115
  Transmission Date: 20060501
  Serious: Yes (Hospitalization, Other)
  Sender: FDA-Public Use
  Company Number: ESWYE812507JUL05

PATIENT
  Age: 60 Year
  Sex: Male

DRUGS (4)
  1. RAPAMUNE [Suspect]
     Indication: PROPHYLAXIS AGAINST TRANSPLANT REJECTION
     Dosage: 5 MG 1X PER 1 DAY ORAL
     Route: 048
     Dates: start: 20050213
  2. MYCOPHENOLATE MOFETIL (MYCOPHENOLATE MOFETIL) [Concomitant]
  3. PREDNISONE [Concomitant]
  4. ZENAPAX [Concomitant]

REACTIONS (12)
  - BLOOD CULTURE POSITIVE [None]
  - BODY TEMPERATURE INCREASED [None]
  - COMPLICATIONS OF TRANSPLANTED KIDNEY [None]
  - CULTURE URINE POSITIVE [None]
  - DEVICE FAILURE [None]
  - INFECTION IN AN IMMUNOCOMPROMISED HOST [None]
  - KIDNEY ANASTOMOSIS [None]
  - KLEBSIELLA INFECTION [None]
  - NUCLEAR MAGNETIC RESONANCE IMAGING ABNORMAL [None]
  - POST PROCEDURAL COMPLICATION [None]
  - PYELONEPHRITIS ACUTE [None]
  - URINOMA [None]
